FAERS Safety Report 12984025 (Version 1)
Quarter: 2016Q4

REPORT INFORMATION
  Report Type: Spontaneous
  Country: FR (occurrence: FR)
  Receive Date: 20161129
  Receipt Date: 20161129
  Transmission Date: 20170207
  Serious: Yes (Hospitalization)
  Sender: FDA-Public Use
  Company Number: FR-MALLINCKRODT-T201606082

PATIENT
  Age: 83 Year
  Sex: Female

DRUGS (13)
  1. COUMADINE [Suspect]
     Active Substance: WARFARIN SODIUM
     Indication: PRODUCT USED FOR UNKNOWN INDICATION
     Dosage: 1 DF, UNK
     Route: 048
     Dates: end: 20161024
  2. DEDROGYL [Concomitant]
     Active Substance: CALCIFEDIOL
     Dosage: UNK
  3. NORMACOL LAVAMENT [Concomitant]
     Dosage: UNK
  4. FERROSTRANE [Concomitant]
     Active Substance: SODIUM FEREDETATE
     Dosage: 0.68%, UNK
  5. FOLIC ACID. [Suspect]
     Active Substance: FOLIC ACID
     Indication: PRODUCT USED FOR UNKNOWN INDICATION
     Dosage: 5 MG, BID (MORNING AND EVENING)
     Route: 048
     Dates: start: 20161013, end: 20161022
  6. FUROSEMIDE. [Suspect]
     Active Substance: FUROSEMIDE
     Indication: PRODUCT USED FOR UNKNOWN INDICATION
     Dosage: UNK
     Route: 065
  7. TERBUTALINE SULFATE. [Concomitant]
     Active Substance: TERBUTALINE SULFATE
     Dosage: UNK
  8. AUGMENTIN [Suspect]
     Active Substance: AMOXICILLIN\CLAVULANATE POTASSIUM
     Indication: BRONCHITIS
     Dosage: 1 DF, BID IN THE MORNING AND IN THE EVENING
     Route: 042
     Dates: start: 20161020, end: 20161028
  9. IPRATROPIUM BROMIDE. [Concomitant]
     Active Substance: IPRATROPIUM BROMIDE
     Dosage: UNK
  10. BUDESONIDE. [Concomitant]
     Active Substance: BUDESONIDE
     Dosage: UNK
  11. NEBIVOLOL. [Suspect]
     Active Substance: NEBIVOLOL
     Indication: PRODUCT USED FOR UNKNOWN INDICATION
     Dosage: UNK
     Route: 048
  12. LEVETIRACETAM. [Suspect]
     Active Substance: LEVETIRACETAM
     Indication: EPILEPSY
     Dosage: UNK
     Route: 048
     Dates: start: 20161017
  13. OFIRMEV [Suspect]
     Active Substance: ACETAMINOPHEN
     Indication: PRODUCT USED FOR UNKNOWN INDICATION
     Dosage: 1 G, Q8H
     Route: 042
     Dates: start: 20161020

REACTIONS (1)
  - International normalised ratio increased [Recovering/Resolving]

NARRATIVE: CASE EVENT DATE: 20161024
